FAERS Safety Report 4726950-4 (Version None)
Quarter: 2005Q3

REPORT INFORMATION
  Report Type: 
  Country: None (occurrence: None)
  Receive Date: 20050728
  Receipt Date: 20050721
  Transmission Date: 20060218
  Serious: Yes (Hospitalization)
  Sender: FDA-Public Use
  Company Number: US-JNJFOC-20050704774

PATIENT
  Sex: Male
  Weight: 132.6 kg

DRUGS (10)
  1. NATRECOR [Suspect]
     Route: 042
  2. NATRECOR [Suspect]
     Dosage: 2 MCG/KG BOLUS AND 0.01 MCG/KG/MIN INFUSION THREE TIMES A WEEK
     Route: 042
  3. BUMEX [Suspect]
  4. TRICOR [Concomitant]
  5. LASIX [Concomitant]
  6. ISOSORBIDE [Concomitant]
  7. AVANDIA [Concomitant]
  8. DIGOXIN [Concomitant]
  9. ASPIRIN [Concomitant]
  10. COREG [Concomitant]

REACTIONS (4)
  - CARDIAC FAILURE [None]
  - DIARRHOEA [None]
  - DRUG INTERACTION [None]
  - HAEMATOCHEZIA [None]
